FAERS Safety Report 16942692 (Version 3)
Quarter: 2020Q1

REPORT INFORMATION
  Report Type: Report from Study
  Country: DK (occurrence: DK)
  Receive Date: 20191021
  Receipt Date: 20200115
  Transmission Date: 20200409
  Serious: Yes (Death, Life-Threatening)
  Sender: FDA-Public Use
  Company Number: DK-JAZZ-2019-DK-012966

PATIENT
  Age: 36 Year
  Sex: Male

DRUGS (2)
  1. CPX-351 [Suspect]
     Active Substance: CYTARABINE\DAUNORUBICIN
     Indication: ACUTE MYELOID LEUKAEMIA
     Dosage: 100 ?G/KG, QD
     Route: 042
     Dates: start: 20190801, end: 20190805
  2. FLUDARABINE [Suspect]
     Active Substance: FLUDARABINE PHOSPHATE
     Indication: ACUTE MYELOID LEUKAEMIA
     Dosage: UNK
     Dates: start: 20190801, end: 20190805

REACTIONS (3)
  - Infection [Recovered/Resolved]
  - Sepsis [Fatal]
  - Cerebral infarction [Recovered/Resolved]

NARRATIVE: CASE EVENT DATE: 20190827
